FAERS Safety Report 7376863-7 (Version None)
Quarter: 2011Q1

REPORT INFORMATION
  Report Type: 
  Country: None (occurrence: None)
  Receive Date: 20110326
  Receipt Date: 20110317
  Transmission Date: 20110831
  Serious: Yes (Other)
  Sender: FDA-Public Use
  Company Number: PHHY2010BR70483

PATIENT
  Age: 42 Year
  Sex: Male

DRUGS (1)
  1. DIOVAN [Suspect]
     Indication: HYPERTENSION
     Dosage: 160 MG, UNK
     Route: 048
     Dates: start: 20101019

REACTIONS (4)
  - PHARYNGEAL OEDEMA [None]
  - TONSILLAR DISORDER [None]
  - SUFFOCATION FEELING [None]
  - DYSPNOEA [None]
